FAERS Safety Report 9443591 (Version 2)
Quarter: 2014Q1

REPORT INFORMATION
  Report Type: Report from Study
  Country: US (occurrence: US)
  Receive Date: 20130806
  Receipt Date: 20140320
  Transmission Date: 20141002
  Serious: Yes (Death, Life-Threatening, Other)
  Sender: FDA-Public Use
  Company Number: US-ROCHE-1257909

PATIENT
  Age: 81 Year
  Sex: Female

DRUGS (3)
  1. RANIBIZUMAB [Suspect]
     Indication: PRODUCT USED FOR UNKNOWN INDICATION
     Dosage: 0.5 MG IN 0.05ML
     Route: 042
     Dates: start: 20070731, end: 20130206
  2. RANIBIZUMAB [Suspect]
     Dosage: 0.5 MG IN 0.05ML
     Route: 042
     Dates: start: 20121227
  3. RANIBIZUMAB [Suspect]
     Dosage: 0.5 MG IN 0.05ML
     Route: 042
     Dates: start: 20130206

REACTIONS (8)
  - Death [Fatal]
  - Myocardial infarction [Recovered/Resolved]
  - Bladder cancer [Not Recovered/Not Resolved]
  - Open angle glaucoma [Unknown]
  - Iridocyclitis [Unknown]
  - Hypertension [Unknown]
  - Hypercholesterolaemia [Unknown]
  - Malaise [Unknown]
